FAERS Safety Report 17444200 (Version 1)
Quarter: 2020Q1

REPORT INFORMATION
  Report Type: Report from Study
  Country: IT (occurrence: IT)
  Receive Date: 20200221
  Receipt Date: 20200221
  Transmission Date: 20200409
  Serious: Yes (Hospitalization)
  Sender: FDA-Public Use
  Company Number: IT-ROCHE-2553604

PATIENT
  Age: 73 Year
  Sex: Male

DRUGS (6)
  1. XATRAL [Concomitant]
     Active Substance: ALFUZOSIN
  2. DUTASTERIDE. [Concomitant]
     Active Substance: DUTASTERIDE
  3. CLONAZEPAM. [Suspect]
     Active Substance: CLONAZEPAM
     Indication: DRUG ABUSE
     Route: 048
     Dates: start: 20190706, end: 20190706
  4. NORVASC [Concomitant]
     Active Substance: AMLODIPINE BESYLATE
  5. JUMEX [Concomitant]
     Active Substance: SELEGILINE HYDROCHLORIDE
  6. SINEMET [Concomitant]
     Active Substance: CARBIDOPA\LEVODOPA

REACTIONS (3)
  - Fall [Recovered/Resolved]
  - Incorrect dose administered [Unknown]
  - Sopor [Recovered/Resolved]

NARRATIVE: CASE EVENT DATE: 20190708
